FAERS Safety Report 16378632 (Version 1)
Quarter: 2019Q2

REPORT INFORMATION
  Report Type: Spontaneous
  Country: US (occurrence: US)
  Receive Date: 20190415
  Receipt Date: 20190415
  Transmission Date: 20190711
  Serious: Yes (Disabling)
  Sender: FDA-Public Use
  Company Number: None

PATIENT
  Age: 52 Year
  Sex: Female
  Weight: 68.4 kg

DRUGS (3)
  1. VITAMINS AND SUPPLEMENTS (UNSPECIFIED) [Concomitant]
     Active Substance: MINERALS\VITAMINS
  2. PROPARACAINE HYDROCHLORIDE OPHTHALMIC 0.5 % [Suspect]
     Active Substance: PROPARACAINE HYDROCHLORIDE
     Indication: OPHTHALMOLOGICAL EXAMINATION
     Dates: start: 20180705, end: 20181129
  3. CYCLOPENTOLATE HYDROCHLORIDE OPHTHALMIC 1% [Suspect]
     Active Substance: CYCLOPENTOLATE HYDROCHLORIDE
     Indication: OPHTHALMOLOGICAL EXAMINATION
     Route: 030
     Dates: start: 20180705, end: 20181129

REACTIONS (2)
  - Retinal tear [None]
  - Retinal detachment [None]

NARRATIVE: CASE EVENT DATE: 20180705
